FAERS Safety Report 7492454-1 (Version None)
Quarter: 2011Q2

REPORT INFORMATION
  Report Type: 
  Country: None (occurrence: None)
  Receive Date: 20110519
  Receipt Date: 20110504
  Transmission Date: 20111010
  Serious: No
  Sender: FDA-Public Use
  Company Number: US-B.I. PHARMACEUTICALS,INC./RIDGEFIELD-2011-BP-09054BP

PATIENT
  Sex: Male

DRUGS (18)
  1. FUROSEMIDE [Concomitant]
     Dosage: 80 MG
  2. SIMVASTATIN [Concomitant]
  3. FORMOTEROL FUMARATE [Concomitant]
  4. LOVAZA [Concomitant]
  5. LOSARTAN POTASSIUM [Concomitant]
  6. TERAZOSIN HCL [Concomitant]
     Indication: PROSTATOMEGALY
  7. TEMAZ [Concomitant]
     Indication: DRUG THERAPY CHANGED
  8. AMLODIPINE BESYLATE [Concomitant]
  9. VITAMIN C [Concomitant]
     Dosage: 1000 MG
  10. CALCIUM WITH VITAMIN D [Concomitant]
  11. PRADAXA [Suspect]
     Indication: ATRIAL FIBRILLATION
     Dosage: 150 MG
  12. ENTERIC [Concomitant]
     Dosage: 81 MG
  13. SOTALOL HCL [Concomitant]
  14. MULTI-VITAMIN [Concomitant]
  15. KLOR-CON [Concomitant]
     Dosage: 16 MEQ
  16. MOMETASONE FUROATE [Concomitant]
     Route: 048
  17. NITROGLYCERIN [Concomitant]
  18. VITAMIN E [Concomitant]
     Dosage: 800 U

REACTIONS (2)
  - LACERATION [None]
  - HAEMORRHAGE [None]
